FAERS Safety Report 10253445 (Version 1)
Quarter: 2014Q2

REPORT INFORMATION
  Report Type: Spontaneous
  Country: US (occurrence: US)
  Receive Date: 20140623
  Receipt Date: 20140623
  Transmission Date: 20141212
  Serious: Yes (Other)
  Sender: FDA-Public Use
  Company Number: US-ABBVIE-14P-163-1250785-00

PATIENT
  Age: 34 Year
  Sex: Female

DRUGS (29)
  1. VALPROIC ACID [Suspect]
     Indication: BIPOLAR DISORDER
     Route: 065
  2. CHLORPROMAZINE [Suspect]
     Indication: BIPOLAR DISORDER
     Route: 065
  3. TRIFLUOPERAZINE HYDROCHLORIDE [Suspect]
     Indication: BIPOLAR DISORDER
     Route: 065
  4. QUETIAPINE FUMARATE [Suspect]
     Indication: BIPOLAR DISORDER
     Route: 065
  5. DESIPRAMINE HYDROCHLORIDE [Suspect]
     Indication: BIPOLAR DISORDER
     Route: 065
  6. TOPIRAMATE [Suspect]
     Indication: BIPOLAR DISORDER
     Route: 065
  7. CARBAMAZEPINE [Suspect]
     Indication: BIPOLAR DISORDER
     Route: 065
  8. SERTRALINE HYDROCHLORIDE [Suspect]
     Indication: BIPOLAR DISORDER
     Route: 065
  9. CITALOPRAM [Suspect]
     Indication: BIPOLAR DISORDER
     Route: 065
  10. RISPERIDONE [Suspect]
     Indication: BIPOLAR DISORDER
     Route: 065
  11. FLUOXETINE [Suspect]
     Indication: BIPOLAR DISORDER
     Route: 065
  12. PAROXETINE HYDROCHLORIDE [Suspect]
     Indication: BIPOLAR DISORDER
     Route: 065
  13. VENLAFAXINE HYDROCHLORIDE [Suspect]
     Indication: BIPOLAR DISORDER
     Route: 065
  14. ZONISAMIDE [Suspect]
     Indication: BIPOLAR DISORDER
     Route: 065
  15. ZONISAMIDE [Suspect]
     Indication: PATHOLOGICAL GAMBLING
  16. HALOPERIDOL [Suspect]
     Indication: BIPOLAR DISORDER
     Route: 065
  17. NORTRIPTYLINE [Suspect]
     Indication: BIPOLAR DISORDER
     Route: 065
  18. CLOMIPRAMINE [Suspect]
     Indication: BIPOLAR DISORDER
     Route: 065
  19. BUSPIRONE [Suspect]
     Indication: BIPOLAR DISORDER
     Route: 065
  20. BUPROPION [Suspect]
     Indication: BIPOLAR DISORDER
     Route: 065
  21. IMIPRAMINE [Suspect]
     Indication: NARCOLEPSY
     Route: 065
  22. METHYLPHENIDATE [Suspect]
     Indication: NARCOLEPSY
     Route: 065
  23. PEMOLINE [Suspect]
     Indication: NARCOLEPSY
     Route: 065
  24. MODAFINIL [Suspect]
     Indication: NARCOLEPSY
     Route: 065
  25. PROTRIPTYLINE [Concomitant]
     Indication: PRODUCT USED FOR UNKNOWN INDICATION
  26. ARIPIPRAZOLE [Concomitant]
     Indication: AFFECTIVE DISORDER
  27. ARIPIPRAZOLE [Concomitant]
     Dosage: EVERY MORNING
  28. ESCITALOPRAM [Concomitant]
     Indication: AFFECTIVE DISORDER
  29. ESCITALOPRAM [Concomitant]

REACTIONS (9)
  - Narcolepsy [Unknown]
  - Sedation [Unknown]
  - Psychotic disorder [Unknown]
  - Off label use [Unknown]
  - Mania [Unknown]
  - Depression [Unknown]
  - Bradycardia [Unknown]
  - Off label use [Unknown]
  - Off label use [Unknown]
